FAERS Safety Report 12163293 (Version 1)
Quarter: 2016Q1

REPORT INFORMATION
  Report Type: Report from Study
  Country: NL (occurrence: NL)
  Receive Date: 20160309
  Receipt Date: 20160309
  Transmission Date: 20160526
  Serious: Yes (Other)
  Sender: FDA-Public Use
  Company Number: NL-AMGEN-NLDSL2016026518

PATIENT
  Age: 62 Year
  Sex: Female

DRUGS (6)
  1. CALCIUMCARBONAT [Concomitant]
     Dosage: 500 MG, QD
     Dates: start: 20150116
  2. MACROGOL + ELECTROLYTES SANDOZ [Concomitant]
     Dosage: UNK UNK, BID
     Dates: start: 20150910
  3. XGEVA [Suspect]
     Active Substance: DENOSUMAB
     Indication: PRODUCT USED FOR UNKNOWN INDICATION
     Dosage: 120 MG, Q4WK
     Route: 058
     Dates: start: 20140107, end: 20160301
  4. ANASTROZOL [Concomitant]
     Active Substance: ANASTROZOLE
     Dosage: 1 MG, QD
     Dates: start: 20160104
  5. OXYCODON [Concomitant]
     Active Substance: OXYCODONE
     Dosage: 40 MG, QD
     Dates: start: 20150624
  6. TAMOXIFEN [Concomitant]
     Active Substance: TAMOXIFEN
     Dosage: UNK

REACTIONS (8)
  - Polypectomy [Unknown]
  - Abscess jaw [Unknown]
  - Hysteroscopy [Unknown]
  - Osteonecrosis of jaw [Unknown]
  - Malignant neoplasm progression [Unknown]
  - Lymphadenopathy [Unknown]
  - Osteoarthritis [Unknown]
  - Myositis [Unknown]

NARRATIVE: CASE EVENT DATE: 20140204
